FAERS Safety Report 7044165-4 (Version None)
Quarter: 2010Q4

REPORT INFORMATION
  Report Type: 
  Country: None (occurrence: None)
  Receive Date: 20101013
  Receipt Date: 20101001
  Transmission Date: 20110411
  Serious: No
  Sender: FDA-Public Use
  Company Number: US-PFIZER INC-2010125239

PATIENT
  Age: 80 Year
  Sex: Female

DRUGS (1)
  1. LYRICA [Suspect]
     Indication: DEPRESSION
     Dosage: 50 MG, 3X/DAY

REACTIONS (3)
  - DIZZINESS [None]
  - FEELING ABNORMAL [None]
  - INSOMNIA [None]
